FAERS Safety Report 7514316-3 (Version None)
Quarter: 2011Q2

REPORT INFORMATION
  Report Type: 
  Country: None (occurrence: None)
  Receive Date: 20110601
  Receipt Date: 20110523
  Transmission Date: 20111010
  Serious: No
  Sender: FDA-Public Use
  Company Number: US-BIOGENIDEC-2010BI028743

PATIENT
  Sex: Female

DRUGS (4)
  1. TYSABRI [Suspect]
     Indication: MULTIPLE SCLEROSIS
     Route: 042
     Dates: start: 20100628
  2. AMPYRA [Concomitant]
     Dates: start: 20100601
  3. AVONEX [Concomitant]
     Indication: MULTIPLE SCLEROSIS
     Route: 030
     Dates: start: 19980415
  4. NITROFURANTOIN [Concomitant]
     Indication: PROPHYLAXIS URINARY TRACT INFECTION

REACTIONS (7)
  - LABYRINTHITIS [None]
  - PHARYNGITIS STREPTOCOCCAL [None]
  - BACK PAIN [None]
  - DIZZINESS [None]
  - CYSTITIS [None]
  - VOMITING [None]
  - OTITIS MEDIA [None]
